FAERS Safety Report 21128410 (Version 6)
Quarter: 2023Q4

REPORT INFORMATION
  Report Type: Spontaneous
  Country: US (occurrence: US)
  Receive Date: 20220725
  Receipt Date: 20231009
  Transmission Date: 20240110
  Serious: No
  Sender: FDA-Public Use
  Company Number: US-PFIZER INC-PV202200028723

PATIENT
  Age: 86 Year
  Sex: Female
  Weight: 57.15 kg

DRUGS (1)
  1. PREMARIN [Suspect]
     Active Substance: ESTROGENS, CONJUGATED
     Dosage: 0.5 G, (3 X A WEEK)
     Route: 067
     Dates: end: 202211

REACTIONS (5)
  - Body height decreased [Unknown]
  - Tremor [Unknown]
  - Drug effective for unapproved indication [Unknown]
  - Off label use [Unknown]
  - Product prescribing error [Unknown]
